FAERS Safety Report 9018597 (Version 2)
Quarter: 2013Q1

REPORT INFORMATION
  Report Type: Spontaneous
  Country: GB (occurrence: GB)
  Receive Date: 20130118
  Receipt Date: 20130204
  Transmission Date: 20140127
  Serious: No
  Sender: FDA-Public Use
  Company Number: GB-JNJFOC-20130104721

PATIENT
  Sex: 0

DRUGS (1)
  1. RILPIVIRINE [Suspect]
     Indication: HIV INFECTION
     Route: 048

REACTIONS (1)
  - Helicobacter infection [Unknown]
